FAERS Safety Report 8437128-5 (Version None)
Quarter: 2012Q2

REPORT INFORMATION
  Report Type: 
  Country: None (occurrence: None)
  Receive Date: 20120614
  Receipt Date: 20120403
  Transmission Date: 20120825
  Serious: No
  Sender: FDA-Public Use
  Company Number: US-AMGEN-USASP2012021168

PATIENT
  Age: 70 Year
  Sex: Female

DRUGS (10)
  1. INSULIN [Concomitant]
  2. VITAMIN D [Concomitant]
  3. BUSPIRONE HCL [Concomitant]
     Dosage: UNK
     Dates: end: 20110101
  4. PROLIA [Suspect]
     Indication: OSTEOPOROSIS POSTMENOPAUSAL
     Dosage: 60 MG, Q6MO
     Dates: start: 20111201
  5. METFORMIN HCL [Concomitant]
  6. CALTRATE                           /00751519/ [Concomitant]
  7. ZOLPIDEM [Concomitant]
     Dosage: UNK
     Dates: end: 20110101
  8. ONE A DAY                          /02262701/ [Concomitant]
  9. COUMADIN [Concomitant]
     Dates: start: 19861001
  10. LOSARTAN POTASSIUM [Concomitant]

REACTIONS (1)
  - ALOPECIA [None]
